FAERS Safety Report 5207155-X (Version None)
Quarter: 2007Q1

REPORT INFORMATION
  Report Type: 
  Country: None (occurrence: None)
  Receive Date: 20070112
  Receipt Date: 20070102
  Transmission Date: 20070707
  Serious: Yes (Other)
  Sender: FDA-Public Use
  Company Number: GB-ROCHE-477535

PATIENT
  Age: 45 Year
  Sex: Female
  Weight: 109 kg

DRUGS (1)
  1. ORLISTAT [Suspect]
     Indication: OBESITY
     Route: 048
     Dates: start: 20060703, end: 20060704

REACTIONS (2)
  - DEPRESSED MOOD [None]
  - SUICIDAL IDEATION [None]
